FAERS Safety Report 5859268-7 (Version None)
Quarter: 2008Q3

REPORT INFORMATION
  Report Type: 
  Country: None (occurrence: None)
  Receive Date: 20080826
  Receipt Date: 20080826
  Transmission Date: 20090109
  Serious: Yes (Hospitalization)
  Sender: FDA-Public Use
  Company Number: None

PATIENT
  Sex: Female
  Weight: 76.6579 kg

DRUGS (1)
  1. DOXIL [Suspect]
     Dosage: 10MG, ONCE, INTRADUCTALLY

REACTIONS (8)
  - BREAST INFECTION [None]
  - BREAST PAIN [None]
  - ERYTHEMA [None]
  - ESCHAR [None]
  - POST PROCEDURAL COMPLICATION [None]
  - PSEUDOMONAS INFECTION [None]
  - PYREXIA [None]
  - SKIN NECROSIS [None]
